FAERS Safety Report 5136293-5 (Version None)
Quarter: 2006Q4

REPORT INFORMATION
  Report Type: 
  Country: None (occurrence: None)
  Receive Date: 20061027
  Receipt Date: 20061025
  Transmission Date: 20070319
  Serious: Yes (Other)
  Sender: FDA-Public Use
  Company Number: US-GLAXOSMITHKLINE-A0624934A

PATIENT
  Age: 88 Year
  Sex: Female

DRUGS (7)
  1. COREG [Suspect]
     Indication: HYPERTENSION
     Route: 048
  2. LOTENSIN [Concomitant]
  3. AMIODARONE HCL [Concomitant]
  4. EVISTA [Concomitant]
  5. SYNTHROID [Concomitant]
  6. CALCIUM GLUCONATE [Concomitant]
  7. MULTI-VITAMIN [Concomitant]

REACTIONS (5)
  - FATIGUE [None]
  - HYPERTENSION [None]
  - MACULAR OEDEMA [None]
  - PALPITATIONS [None]
  - VISUAL ACUITY REDUCED [None]
